FAERS Safety Report 5242244-5 (Version None)
Quarter: 2007Q1

REPORT INFORMATION
  Report Type: 
  Country: None (occurrence: None)
  Receive Date: 20070215
  Receipt Date: 20070215
  Transmission Date: 20070707
  Serious: Yes (Hospitalization, Disabling, Other)
  Sender: FDA-Public Use
  Company Number: None

PATIENT
  Age: 46 Year
  Sex: Female
  Weight: 61.2356 kg

DRUGS (2)
  1. SEROQUEL [Suspect]
  2. ANTIDEPRESSANT [Suspect]

REACTIONS (2)
  - FEAR [None]
  - PARANOIA [None]
